FAERS Safety Report 20699017 (Version 2)
Quarter: 2022Q2

REPORT INFORMATION
  Report Type: Report from Study
  Country: CA (occurrence: CA)
  Receive Date: 20220412
  Receipt Date: 20220422
  Transmission Date: 20220721
  Serious: Yes (Other)
  Sender: FDA-Public Use
  Company Number: CA-JNJFOC-20220213563

PATIENT
  Age: 29 Year
  Sex: Female
  Weight: 84 kg

DRUGS (5)
  1. REMICADE [Suspect]
     Active Substance: INFLIXIMAB
     Indication: Ankylosing spondylitis
     Dosage: EXPIRATION DATE: 31-AUG-2024, 30-SEP-2024, 31-JUL-2024?APPOINTMENT POSTPONED TILL 19-APR-2022
     Route: 042
  2. ALESSE 28 [Concomitant]
     Active Substance: ETHINYL ESTRADIOL\LEVONORGESTREL
     Indication: Product used for unknown indication
     Route: 065
  3. NAPROXEN [Concomitant]
     Active Substance: NAPROXEN
     Indication: Product used for unknown indication
     Route: 065
  4. SYNTHROID [Concomitant]
     Active Substance: LEVOTHYROXINE SODIUM
     Indication: Product used for unknown indication
     Route: 065
  5. AZATHIOPRINE [Concomitant]
     Active Substance: AZATHIOPRINE
     Indication: Product used for unknown indication
     Route: 065

REACTIONS (14)
  - Sarcoidosis [Unknown]
  - Nodule [Not Recovered/Not Resolved]
  - Bone pain [Unknown]
  - Bleeding time prolonged [Unknown]
  - Laboratory test abnormal [Unknown]
  - Cough [Unknown]
  - Contusion [Unknown]
  - Pain in extremity [Unknown]
  - Fatigue [Unknown]
  - Arthralgia [Recovering/Resolving]
  - Sinusitis [Recovered/Resolved]
  - Streptococcal infection [Recovered/Resolved]
  - Ear infection [Recovered/Resolved]
  - Tonsillitis [Recovered/Resolved]

NARRATIVE: CASE EVENT DATE: 20211101
